FAERS Safety Report 20048531 (Version 4)
Quarter: 2022Q2

REPORT INFORMATION
  Report Type: Spontaneous
  Country: US (occurrence: US)
  Receive Date: 20211109
  Receipt Date: 20220418
  Transmission Date: 20220721
  Serious: No
  Sender: FDA-Public Use
  Company Number: US-PFIZER INC-202101355645

PATIENT
  Age: 16 Year
  Sex: Female

DRUGS (2)
  1. GENOTROPIN [Suspect]
     Active Substance: SOMATROPIN
     Dosage: 0.5 MG
  2. GENOTROPIN [Suspect]
     Active Substance: SOMATROPIN
     Dosage: 0.7 MG
     Dates: start: 202111

REACTIONS (9)
  - Device leakage [Unknown]
  - Device mechanical issue [Unknown]
  - Poor quality device used [Unknown]
  - Underdose [Unknown]
  - Drug dose omission by device [Unknown]
  - Expired product administered [Unknown]
  - Device issue [Unknown]
  - Device information output issue [Unknown]
  - Incorrect dose administered by device [Unknown]
